FAERS Safety Report 14920152 (Version 1)
Quarter: 2018Q2

REPORT INFORMATION
  Report Type: Spontaneous
  Country: US (occurrence: US)
  Receive Date: 20180502
  Receipt Date: 20180502
  Transmission Date: 20180711
  Serious: Yes (Hospitalization)
  Sender: FDA-Public Use
  Company Number: None

PATIENT
  Sex: Female

DRUGS (16)
  1. PREDNISONE 5MG [Concomitant]
     Active Substance: PREDNISONE
  2. ASPIRIN 81MG [Concomitant]
     Active Substance: ASPIRIN
  3. FASLODEX 250/5ML [Concomitant]
  4. VITAMIN B12 1000MCG [Concomitant]
  5. IBRANCE [Suspect]
     Active Substance: PALBOCICLIB
     Indication: BREAST CANCER
     Dosage: ?          OTHER FREQUENCY:DAILY X 21/28 DAYS;?
     Route: 048
     Dates: start: 20180112
  6. MONUROL [Concomitant]
     Active Substance: FOSFOMYCIN TROMETHAMINE
  7. COZAAR [Concomitant]
     Active Substance: LOSARTAN POTASSIUM
  8. PRAVACHOL 40MG [Concomitant]
  9. HYDROCHROTHIAZIDE 12.5MG [Concomitant]
  10. ALBUTEROL 0.63MG/3ML [Concomitant]
  11. SPIRIVA 60MG/ML [Concomitant]
  12. GLUCOSAMINE/CHONDROITIN [Concomitant]
  13. OMEGA-3 600MG [Concomitant]
  14. PROLIA [Concomitant]
     Active Substance: DENOSUMAB
  15. SYMBICORT [Concomitant]
     Active Substance: BUDESONIDE\FORMOTEROL FUMARATE DIHYDRATE
  16. VITAMIN C/D/ROSE HIPS [Concomitant]

REACTIONS (1)
  - Hospitalisation [None]
